FAERS Safety Report 22144829 (Version 1)
Quarter: 2023Q1

REPORT INFORMATION
  Report Type: Report from Study
  Country: US (occurrence: US)
  Receive Date: 20230328
  Receipt Date: 20230328
  Transmission Date: 20230417
  Serious: Yes (Other)
  Sender: FDA-Public Use
  Company Number: US-ABBVIE-4706457

PATIENT
  Age: 46 Year
  Sex: Female

DRUGS (1)
  1. RINVOQ [Suspect]
     Active Substance: UPADACITINIB
     Indication: Product used for unknown indication
     Route: 048
     Dates: end: 202210

REACTIONS (6)
  - Urinary bladder suspension [Unknown]
  - Tenoplasty [Unknown]
  - Foot deformity [Unknown]
  - Intestinal adhesion lysis [Unknown]
  - Blood cholesterol increased [Unknown]
  - Meniscus removal [Unknown]

NARRATIVE: CASE EVENT DATE: 20220201
